FAERS Safety Report 7380158-5 (Version None)
Quarter: 2011Q1

REPORT INFORMATION
  Report Type: 
  Country: None (occurrence: None)
  Receive Date: 20110329
  Receipt Date: 20100914
  Transmission Date: 20110831
  Serious: No
  Sender: FDA-Public Use
  Company Number: US-MYLANLABS-2010S1016978

PATIENT
  Age: 34 Year
  Sex: Female
  Weight: 70.31 kg

DRUGS (2)
  1. ENDOMETRIN [Concomitant]
     Indication: INFERTILITY
     Route: 054
  2. ESTRADIOL [Suspect]
     Indication: INFERTILITY
     Dosage: QW
     Dates: start: 20100818

REACTIONS (1)
  - APPLICATION SITE IRRITATION [None]
